FAERS Safety Report 18212716 (Version 1)
Quarter: 2020Q3

REPORT INFORMATION
  Report Type: Spontaneous
  Country: ES (occurrence: ES)
  Receive Date: 20200831
  Receipt Date: 20200831
  Transmission Date: 20201103
  Serious: Yes (Life-Threatening, Hospitalization)
  Sender: FDA-Public Use
  Company Number: NVSC2020ES228768

PATIENT
  Age: 88 Year
  Sex: Female

DRUGS (6)
  1. DOLOCATIL [Concomitant]
     Active Substance: ACETAMINOPHEN
     Indication: OSTEOARTHRITIS
     Dosage: 1 G, Q8H
     Route: 048
     Dates: start: 20200320
  2. SYMBICORT [Concomitant]
     Active Substance: BUDESONIDE\FORMOTEROL FUMARATE DIHYDRATE
     Indication: BRONCHITIS
     Route: 055
  3. ENALAPRIL [Suspect]
     Active Substance: ENALAPRIL
     Indication: HYPERTENSION
     Dosage: 10 MG, QD
     Route: 048
     Dates: start: 20181110, end: 20200805
  4. SIMVASTATINA [Concomitant]
     Active Substance: SIMVASTATIN
     Indication: CEREBROVASCULAR DISORDER
     Dosage: 10 MG, QD
     Route: 048
     Dates: start: 20161028
  5. METOPRIM [Concomitant]
     Indication: DIABETES MELLITUS
     Dosage: 1275 MG, Q24H
     Route: 048
     Dates: start: 20141115
  6. PAROXETINE. [Concomitant]
     Active Substance: PAROXETINE
     Indication: PRODUCT USED FOR UNKNOWN INDICATION
     Dosage: 20 MG, QD
     Route: 048
     Dates: start: 20121103

REACTIONS (1)
  - Angioedema [Recovered/Resolved]

NARRATIVE: CASE EVENT DATE: 20200803
